FAERS Safety Report 8492486-0 (Version None)
Quarter: 2012Q3

REPORT INFORMATION
  Report Type: 
  Country: None (occurrence: None)
  Receive Date: 20120706
  Receipt Date: 20120521
  Transmission Date: 20120928
  Serious: Yes (Hospitalization)
  Sender: FDA-Public Use
  Company Number: DE-ROCHE-1070246

PATIENT
  Age: 61 Year
  Sex: Male
  Weight: 88 kg

DRUGS (3)
  1. TELAPREVIR [Suspect]
     Indication: HEPATITIS C
     Dates: start: 20120217, end: 20120503
  2. COPEGUS [Suspect]
     Indication: HEPATITIS C
     Dosage: REPORTED AS COPEGUS
     Route: 048
     Dates: start: 20120217
  3. PEGASYS [Suspect]
     Indication: HEPATITIS C
     Route: 058
     Dates: start: 20120217

REACTIONS (3)
  - SEPSIS [None]
  - GENERAL PHYSICAL HEALTH DETERIORATION [None]
  - PYREXIA [None]
